FAERS Safety Report 8586138-6 (Version None)
Quarter: 2012Q3

REPORT INFORMATION
  Report Type: 
  Country: None (occurrence: None)
  Receive Date: 20120810
  Receipt Date: 20120730
  Transmission Date: 20120928
  Serious: Yes (Other)
  Sender: FDA-Public Use
  Company Number: US-ROCHE-1094622

PATIENT

DRUGS (22)
  1. LIPITOR [Concomitant]
  2. SPIRIVA [Concomitant]
     Dosage: DAILY
  3. NIACIN [Concomitant]
  4. ASPIRIN [Concomitant]
  5. LEVAQUIN [Suspect]
     Indication: PRODUCT USED FOR UNKNOWN INDICATION
  6. NARCOTICS [Concomitant]
     Route: 048
  7. ROCEPHIN [Suspect]
     Indication: PRODUCT USED FOR UNKNOWN INDICATION
  8. FISH OIL [Concomitant]
  9. ALBUTEROL [Concomitant]
  10. FLUTICASONE PROPIONATE [Concomitant]
     Dosage: 1 PUFF  BID 250/50
  11. DIMEXID [Concomitant]
  12. CALCIUM D3 [Concomitant]
     Dosage: DAILY
  13. LEVOTHYROXINE SODIUM [Concomitant]
     Dosage: 0.088 DAILY
  14. EXCEDRIN (UNITED STATES) [Suspect]
     Indication: PRODUCT USED FOR UNKNOWN INDICATION
  15. ALDACTONE [Concomitant]
  16. ACTOS [Suspect]
     Indication: PRODUCT USED FOR UNKNOWN INDICATION
  17. GLIPIZIDE [Concomitant]
  18. POTASSIUM CHLORIDE [Concomitant]
  19. FOSAMAX [Concomitant]
  20. ZANTAC [Concomitant]
  21. BLOCKAIN [Suspect]
     Indication: PRODUCT USED FOR UNKNOWN INDICATION
  22. ATIVAN [Concomitant]
     Dosage: 1 MG OF 12 AS REQUIRED 30/ MO

REACTIONS (5)
  - PRURITUS [None]
  - DYSPNOEA [None]
  - CARDIAC FAILURE CONGESTIVE [None]
  - NAUSEA [None]
  - ERYTHEMA [None]
